FAERS Safety Report 4703425-X (Version None)
Quarter: 2005Q2

REPORT INFORMATION
  Report Type: 
  Country: None (occurrence: None)
  Receive Date: 20050629
  Receipt Date: 20050609
  Transmission Date: 20051028
  Serious: Yes (Hospitalization, Other)
  Sender: FDA-Public Use
  Company Number: US_0411107712

PATIENT
  Age: 52 Year
  Sex: Male
  Weight: 109 kg

DRUGS (24)
  1. ZYPREXA [Suspect]
     Dosage: 5 MG/1 DAY
     Dates: start: 20000519, end: 20030303
  2. PAXIL [Concomitant]
  3. EFFEXOR [Concomitant]
  4. BUPROPION HCL [Concomitant]
  5. MIRTAZAPINE [Concomitant]
  6. PAROXETINE HCL [Concomitant]
  7. PERPHENAZINE [Concomitant]
  8. CHLORIDAZEPOXIDE [Concomitant]
  9. TRAZODONE [Concomitant]
  10. PROTONIX [Concomitant]
  11. LORAZEPAM [Concomitant]
  12. HYDROCODONE [Concomitant]
  13. INSULIN [Concomitant]
  14. NIFEREX (POLYSACCHARIDE-IRON COMPLEX) [Concomitant]
  15. VIOKASE (PANCRELIPASE) [Concomitant]
  16. ZOCOR [Concomitant]
  17. FLUTICASONE PROPIONATE [Concomitant]
  18. ALLEGRA [Concomitant]
  19. SINGULAUR (MONTELUKAST) [Concomitant]
  20. GLUCOPHAGE [Concomitant]
  21. LESCOL [Concomitant]
  22. REGLAN [Concomitant]
  23. NIZATIDINE [Concomitant]
  24. PERPHENAZINE [Concomitant]

REACTIONS (17)
  - ANAEMIA [None]
  - CHRONIC OBSTRUCTIVE PULMONARY DISEASE [None]
  - DIABETES MELLITUS [None]
  - GASTRITIS HAEMORRHAGIC [None]
  - GRANULOMA [None]
  - HEPATIC STEATOSIS [None]
  - HEPATOCELLULAR DAMAGE [None]
  - HYPERCHOLESTEROLAEMIA [None]
  - HYPERTRIGLYCERIDAEMIA [None]
  - IRON DEFICIENCY ANAEMIA [None]
  - OBESITY [None]
  - PANCREATIC MASS [None]
  - PANCREATIC PSEUDOCYST [None]
  - PANCREATITIS ACUTE [None]
  - PANCREATITIS HAEMORRHAGIC [None]
  - SPLENOMEGALY [None]
  - WEIGHT DECREASED [None]
